FAERS Safety Report 7648016-6 (Version None)
Quarter: 2011Q3

REPORT INFORMATION
  Report Type: 
  Country: None (occurrence: None)
  Receive Date: 20110801
  Receipt Date: 20110727
  Transmission Date: 20111222
  Serious: Yes (Death, Hospitalization, Other)
  Sender: FDA-Public Use
  Company Number: DK-AMGEN-DNKSP2011028593

PATIENT
  Age: 81 Year
  Sex: Male
  Weight: 80 kg

DRUGS (7)
  1. NPLATE [Suspect]
     Indication: IDIOPATHIC THROMBOCYTOPENIC PURPURA
  2. CYKLOKAPRON [Concomitant]
     Dosage: 1000 MG, UNK
     Route: 048
     Dates: start: 20110330, end: 20110611
  3. NPLATE [Suspect]
     Indication: THROMBOCYTOPENIA
     Dosage: 6 A?G/KG, UNK
     Route: 058
     Dates: start: 20110412, end: 20110523
  4. MORPHINE SULFATE [Concomitant]
     Dosage: 10 MG, UNK
     Dates: start: 20110523, end: 20110611
  5. FUROSEMID                          /00032601/ [Concomitant]
     Dosage: 40 MG, UNK
     Route: 048
     Dates: start: 20040101
  6. POTASSIUM CHLORIDE [Concomitant]
     Dosage: 750 MG, UNK
     Dates: start: 20040101
  7. ENALAPRIL MALEATE [Concomitant]
     Dosage: 12.5 MG, UNK
     Dates: start: 20040101

REACTIONS (1)
  - ACUTE MYELOID LEUKAEMIA [None]
